FAERS Safety Report 15093492 (Version 1)
Quarter: 2018Q2

REPORT INFORMATION
  Report Type: Spontaneous
  Country: US (occurrence: US)
  Receive Date: 20180629
  Receipt Date: 20180629
  Transmission Date: 20180711
  Serious: No
  Sender: FDA-Public Use
  Company Number: US-IPSEN BIOPHARMACEUTICALS, INC.-2018-06867

PATIENT
  Age: 58 Year
  Sex: Female

DRUGS (14)
  1. HYDROXYZINE [Concomitant]
     Active Substance: HYDROXYZINE HYDROCHLORIDE
  2. DYSPORT [Suspect]
     Active Substance: ABOBOTULINUMTOXINA
     Indication: SKIN WRINKLING
  3. CALCIUM [Concomitant]
     Active Substance: CALCIUM
  4. DYSPORT [Suspect]
     Active Substance: ABOBOTULINUMTOXINA
     Indication: OFF LABEL USE
  5. ATIVAN [Concomitant]
     Active Substance: LORAZEPAM
  6. LINZESS [Concomitant]
     Active Substance: LINACLOTIDE
  7. BENEFIBER [Concomitant]
     Active Substance: STARCH, WHEAT
  8. ZANTAC [Concomitant]
     Active Substance: RANITIDINE HYDROCHLORIDE
  9. MELATONIN [Concomitant]
     Active Substance: MELATONIN
  10. SALINE NASAL SPRAY [Concomitant]
     Active Substance: SODIUM CHLORIDE
  11. MONTELUKAST [Concomitant]
     Active Substance: MONTELUKAST SODIUM
  12. DYSPORT [Suspect]
     Active Substance: ABOBOTULINUMTOXINA
     Indication: SKIN WRINKLING
     Dosage: NOT REPORTED
     Route: 065
     Dates: start: 20180418, end: 20180418
  13. BIOTIN [Concomitant]
     Active Substance: BIOTIN
  14. NASACORT [Concomitant]
     Active Substance: TRIAMCINOLONE ACETONIDE

REACTIONS (16)
  - Slow speech [Not Recovered/Not Resolved]
  - Sinusitis [Unknown]
  - Aphonia [Unknown]
  - Palpitations [Not Recovered/Not Resolved]
  - Malaise [Unknown]
  - Oropharyngeal pain [Recovered/Resolved]
  - Ear pain [Recovered/Resolved]
  - Nervousness [Unknown]
  - Headache [Recovered/Resolved]
  - Off label use [Unknown]
  - Dysphonia [Recovered/Resolved]
  - Speech disorder [Unknown]
  - Fatigue [Unknown]
  - Eyelid ptosis [Not Recovered/Not Resolved]
  - Asthenia [Unknown]
  - Heart rate irregular [Unknown]

NARRATIVE: CASE EVENT DATE: 20180418
